FAERS Safety Report 18810247 (Version 1)
Quarter: 2021Q1

REPORT INFORMATION
  Report Type: Spontaneous
  Country: CN (occurrence: CN)
  Receive Date: 20210129
  Receipt Date: 20210129
  Transmission Date: 20210419
  Serious: Yes (Other)
  Sender: FDA-Public Use
  Company Number: CN-009507513-2101CHN011542

PATIENT
  Age: 70 Year
  Sex: Male
  Weight: 50 kg

DRUGS (2)
  1. TIENAM [Suspect]
     Active Substance: CILASTATIN SODIUM\IMIPENEM
     Indication: INFECTION
     Dosage: 500 MG, THREE TIMES PER DAY (TID)
     Route: 041
     Dates: start: 20181229, end: 20190103
  2. SODIUM CHLORIDE. [Concomitant]
     Active Substance: SODIUM CHLORIDE
     Indication: MEDICATION DILUTION
     Dosage: 100ML, TID (ALSO REPORTED AS Q8H)
     Route: 041
     Dates: start: 20181229, end: 20190103

REACTIONS (4)
  - Muscle twitching [Recovering/Resolving]
  - Drooling [Recovering/Resolving]
  - Epilepsy [Recovering/Resolving]
  - Seizure [Recovering/Resolving]

NARRATIVE: CASE EVENT DATE: 20190101
